FAERS Safety Report 7955176-6 (Version None)
Quarter: 2011Q4

REPORT INFORMATION
  Report Type: 
  Country: None (occurrence: None)
  Receive Date: 20111202
  Receipt Date: 20111122
  Transmission Date: 20120403
  Serious: Yes (Other)
  Sender: FDA-Public Use
  Company Number: PHHY2011JP103219

PATIENT
  Age: 68 Year
  Sex: Male

DRUGS (5)
  1. MENEST [Concomitant]
     Dosage: UNK
     Route: 048
     Dates: start: 20030101
  2. SYMMETREL [Suspect]
     Indication: PARKINSON'S DISEASE
     Dosage: UNK
     Route: 048
     Dates: start: 20030101
  3. PERMAX [Concomitant]
     Route: 048
  4. PRAMIPEXOLE DIHYDROCHLORIDE [Concomitant]
  5. COMTAN [Suspect]
     Indication: PARKINSON'S DISEASE
     Dosage: UNK
     Route: 048
     Dates: start: 20090101

REACTIONS (2)
  - ALOPECIA [None]
  - PENILE SIZE REDUCED [None]
